FAERS Safety Report 4313872-6 (Version None)
Quarter: 2004Q1

REPORT INFORMATION
  Report Type: 
  Country: None (occurrence: None)
  Receive Date: 20040302
  Receipt Date: 20031029
  Transmission Date: 20041129
  Serious: Yes (Hospitalization)
  Sender: FDA-Public Use
  Company Number: WAES 0310USA03219

PATIENT
  Age: 63 Year
  Sex: Female

DRUGS (1)
  1. CANCIDAS [Suspect]
     Dosage: 50 MG, IV
     Route: 042
     Dates: start: 20031016

REACTIONS (1)
  - EOSINOPHILIA [None]
